FAERS Safety Report 8708514 (Version 3)
Quarter: 2012Q4

REPORT INFORMATION
  Report Type: 
  Country: GB (occurrence: GB)
  Receive Date: 20120806
  Receipt Date: 20120927
  Transmission Date: 20130627
  Serious: Yes (Other)
  Sender: FDA-Public Use
  Company Number: GB-SANOFI-AVENTIS-2012SA054424

PATIENT
  Age: 73 Year
  Sex: Male

DRUGS (15)
  1. CLOPIDOGREL BISULFATE [Suspect]
     Indication: DRUG USE FOR UNKNOWN INDICATION
     Dates: start: 20110830, end: 20120703
  2. CLOPIDOGREL BISULFATE [Suspect]
     Indication: DRUG USE FOR UNKNOWN INDICATION
     Dates: start: 20070718, end: 20080508
  3. ACETYLSALICYLIC ACID [Concomitant]
     Route: 065
  4. PREGABALIN [Concomitant]
     Dosage: 25 mg capsules  + 100 mg tablets. One to be taken in the morning.
  5. PREGABALIN [Concomitant]
     Dosage: 25 mg capsules  + 100 mg tablets. One to be taken in the morning.
  6. OMEPRAZOLE [Concomitant]
  7. SIMVASTATIN [Concomitant]
  8. ALENDRONIC ACID [Concomitant]
  9. CALCICHEW D3 [Concomitant]
  10. ADALAT [Concomitant]
  11. DIGOXIN [Concomitant]
  12. FUROSEMIDE [Concomitant]
  13. PREDNISOLONE [Concomitant]
  14. IBUPROFEN [Concomitant]
  15. MORPHINE [Concomitant]
     Indication: PAIN

REACTIONS (6)
  - Throat cancer [Unknown]
  - Dysphagia [Unknown]
  - Blood cholesterol abnormal [Unknown]
  - Oedema [Unknown]
  - Hypertension [Unknown]
  - Pain [Unknown]
